FAERS Safety Report 18959270 (Version 1)
Quarter: 2021Q1

REPORT INFORMATION
  Report Type: Spontaneous
  Country: US (occurrence: US)
  Receive Date: 20210302
  Receipt Date: 20210302
  Transmission Date: 20210420
  Serious: Yes (Other)
  Sender: FDA-Public Use
  Company Number: US-ASTRAZENECA-2021A081139

PATIENT
  Age: 43 Year
  Sex: Female
  Weight: 129.3 kg

DRUGS (52)
  1. PANTOPRAZOLE [Suspect]
     Active Substance: PANTOPRAZOLE
     Indication: GASTROOESOPHAGEAL REFLUX DISEASE
     Dosage: GENERIC
     Route: 065
     Dates: end: 2018
  2. CEPHALEXIN. [Concomitant]
     Active Substance: CEPHALEXIN
     Indication: INFECTION
     Dates: start: 202011, end: 202011
  3. LISINOPRIL. [Concomitant]
     Active Substance: LISINOPRIL
     Indication: BLOOD PRESSURE MEASUREMENT
     Dates: start: 201810
  4. ATORVASTATIN [Concomitant]
     Active Substance: ATORVASTATIN
     Indication: BLOOD CHOLESTEROL INCREASED
     Dates: start: 200811
  5. ASPIRIN. [Concomitant]
     Active Substance: ASPIRIN
     Indication: CARDIAC DISORDER
     Dates: start: 201605
  6. PAXIL [Concomitant]
     Active Substance: PAROXETINE HYDROCHLORIDE
  7. ALBUTEROL. [Concomitant]
     Active Substance: ALBUTEROL
  8. NASONEX [Concomitant]
     Active Substance: MOMETASONE FUROATE
  9. ONDANSETRON [Concomitant]
     Active Substance: ONDANSETRON
  10. JARDIANCE [Concomitant]
     Active Substance: EMPAGLIFLOZIN
  11. BENZONATATE. [Concomitant]
     Active Substance: BENZONATATE
  12. BREO ELLIPTA [Concomitant]
     Active Substance: FLUTICASONE FUROATE\VILANTEROL TRIFENATATE
  13. AMOXICILLIN. [Concomitant]
     Active Substance: AMOXICILLIN
     Indication: INFECTION
     Dates: start: 202011, end: 202011
  14. CELEBREX [Concomitant]
     Active Substance: CELECOXIB
  15. CYCLOBENZAPRINE. [Concomitant]
     Active Substance: CYCLOBENZAPRINE
  16. METHYLPREDNISOLONE. [Concomitant]
     Active Substance: METHYLPREDNISOLONE
  17. HYDROCODONE BITARTRATE AND ACETAMINOPHEN [Concomitant]
     Active Substance: ACETAMINOPHEN\HYDROCODONE BITARTRATE
  18. BUSPIRONE [Concomitant]
     Active Substance: BUSPIRONE HYDROCHLORIDE
  19. DICYCLOMINE [Concomitant]
     Active Substance: DICYCLOMINE HYDROCHLORIDE
  20. NEXIUM [Suspect]
     Active Substance: ESOMEPRAZOLE MAGNESIUM
     Indication: GASTROOESOPHAGEAL REFLUX DISEASE
     Route: 048
     Dates: start: 2001
  21. ZYRTEC [Concomitant]
     Active Substance: CETIRIZINE HYDROCHLORIDE
  22. PENICILLIN VK [Concomitant]
     Active Substance: PENICILLIN V POTASSIUM
  23. VENLAFAXINE [Concomitant]
     Active Substance: VENLAFAXINE HYDROCHLORIDE
  24. NAPROXEN. [Concomitant]
     Active Substance: NAPROXEN
     Indication: PAIN
     Dates: start: 201808
  25. TRAMADOL. [Concomitant]
     Active Substance: TRAMADOL
     Indication: PAIN
     Dates: start: 201607
  26. FAMOTIDINE. [Concomitant]
     Active Substance: FAMOTIDINE
     Dates: start: 201611
  27. DICLOFENAC [Concomitant]
     Active Substance: DICLOFENAC
  28. SEROQUEL [Concomitant]
     Active Substance: QUETIAPINE FUMARATE
  29. QUINAPRIL. [Concomitant]
     Active Substance: QUINAPRIL
  30. FLUTICASONE. [Concomitant]
     Active Substance: FLUTICASONE
  31. ARIPIPRAZOLE. [Concomitant]
     Active Substance: ARIPIPRAZOLE
  32. PREVACID [Suspect]
     Active Substance: LANSOPRAZOLE
     Indication: GASTROOESOPHAGEAL REFLUX DISEASE
     Route: 065
     Dates: start: 2002
  33. ACETAMINOPHEN. [Concomitant]
     Active Substance: ACETAMINOPHEN
     Indication: ARTHRITIS
     Dates: start: 201803
  34. MULTIVITAMINS [Concomitant]
     Active Substance: VITAMINS
     Indication: SUPPLEMENTATION THERAPY
     Dates: start: 201605
  35. CIPRO [Concomitant]
     Active Substance: CIPROFLOXACIN HYDROCHLORIDE
  36. VIOXX [Concomitant]
     Active Substance: ROFECOXIB
  37. BIAXIN [Concomitant]
     Active Substance: CLARITHROMYCIN
  38. METRONIDAZOLE. [Concomitant]
     Active Substance: METRONIDAZOLE
  39. ESCITALOPRAM [Concomitant]
     Active Substance: ESCITALOPRAM OXALATE
  40. TOPIRAMATE. [Concomitant]
     Active Substance: TOPIRAMATE
  41. CLARITIN [Concomitant]
     Active Substance: LORATADINE
  42. METFORMIN [Concomitant]
     Active Substance: METFORMIN HYDROCHLORIDE
  43. SINGULAIR [Concomitant]
     Active Substance: MONTELUKAST SODIUM
  44. GUAIFENESIN. [Concomitant]
     Active Substance: GUAIFENESIN
  45. JANUMET [Concomitant]
     Active Substance: METFORMIN HYDROCHLORIDE\SITAGLIPTIN PHOSPHATE
  46. BACLOFEN. [Concomitant]
     Active Substance: BACLOFEN
  47. PRILOSEC [Suspect]
     Active Substance: OMEPRAZOLE MAGNESIUM
     Indication: GASTROOESOPHAGEAL REFLUX DISEASE
     Route: 048
     Dates: start: 200405
  48. ZITHROMAX [Concomitant]
     Active Substance: AZITHROMYCIN DIHYDRATE
  49. ESTRADIOL. [Concomitant]
     Active Substance: ESTRADIOL
  50. RANITIDINE. [Concomitant]
     Active Substance: RANITIDINE
     Dates: start: 201710
  51. AVELOX [Concomitant]
     Active Substance: MOXIFLOXACIN HYDROCHLORIDE
  52. XARELTO [Concomitant]
     Active Substance: RIVAROXABAN

REACTIONS (2)
  - Chronic kidney disease [Not Recovered/Not Resolved]
  - Gastrooesophageal reflux disease [Not Recovered/Not Resolved]

NARRATIVE: CASE EVENT DATE: 2013
